FAERS Safety Report 12013246 (Version 3)
Quarter: 2016Q2

REPORT INFORMATION
  Report Type: Report from Study
  Country: US (occurrence: US)
  Receive Date: 20160205
  Receipt Date: 20160405
  Transmission Date: 20160815
  Serious: Yes (Hospitalization, Other)
  Sender: FDA-Public Use
  Company Number: US-BIOGEN-2016BI00184362

PATIENT
  Age: 56 Year
  Sex: Female

DRUGS (1)
  1. TYSABRI [Suspect]
     Active Substance: NATALIZUMAB
     Indication: MULTIPLE SCLEROSIS
     Route: 042
     Dates: start: 20140512, end: 20151102

REACTIONS (11)
  - Device dislocation [Recovered/Resolved]
  - Multiple sclerosis [Recovered/Resolved]
  - Hypertension [Recovered/Resolved]
  - Decreased appetite [Not Recovered/Not Resolved]
  - Kidney infection [Recovered/Resolved]
  - Renal impairment [Recovered/Resolved]
  - Respiratory arrest [Recovered/Resolved]
  - Abnormal loss of weight [Recovered/Resolved]
  - Mastication disorder [Unknown]
  - Ageusia [Unknown]
  - Tooth infection [Not Recovered/Not Resolved]

NARRATIVE: CASE EVENT DATE: 20150101
